FAERS Safety Report 9579693 (Version 1)
Quarter: 2013Q4

REPORT INFORMATION
  Report Type: Spontaneous
  Country: US (occurrence: US)
  Receive Date: 20131002
  Receipt Date: 20131002
  Transmission Date: 20140711
  Serious: No
  Sender: FDA-Public Use
  Company Number: US-BIOGENIDEC-2013BI091150

PATIENT
  Sex: Male

DRUGS (15)
  1. AVONEX [Suspect]
     Indication: MULTIPLE SCLEROSIS
     Route: 030
     Dates: start: 20080121, end: 20080801
  2. AVONEX [Suspect]
     Indication: MULTIPLE SCLEROSIS
     Route: 030
     Dates: start: 20091201
  3. TYSABRI [Concomitant]
     Indication: MULTIPLE SCLEROSIS
     Route: 042
     Dates: start: 20100423
  4. GABAPENTIN [Concomitant]
     Indication: FATIGUE
  5. MORPHINE [Concomitant]
     Indication: INTESTINAL PERFORATION
  6. MORPHINE [Concomitant]
     Indication: APPENDICITIS PERFORATED
  7. MORPHINE [Concomitant]
     Indication: ILEUS
  8. MORPHINE [Concomitant]
     Indication: CONSTIPATION
  9. MORPHINE [Concomitant]
     Indication: GANGRENE
  10. CLONAZEPAM [Concomitant]
     Indication: RESTLESS LEGS SYNDROME
  11. CLONAZEPAM [Concomitant]
     Indication: RAPID EYE MOVEMENTS SLEEP ABNORMAL
  12. RITALIN [Concomitant]
     Indication: FATIGUE
  13. BETASERON [Concomitant]
     Indication: PRODUCT USED FOR UNKNOWN INDICATION
  14. COPAXONE [Concomitant]
     Indication: PRODUCT USED FOR UNKNOWN INDICATION
  15. AMPYRA [Concomitant]
     Indication: GAIT DISTURBANCE

REACTIONS (8)
  - Faecal incontinence [Unknown]
  - Urinary incontinence [Unknown]
  - Chest discomfort [Unknown]
  - Dyspnoea [Unknown]
  - Hypersensitivity [Unknown]
  - Depression [Recovered/Resolved]
  - Influenza like illness [Recovered/Resolved]
  - Multiple sclerosis relapse [Unknown]
